FAERS Safety Report 4722172-1 (Version None)
Quarter: 2005Q3

REPORT INFORMATION
  Report Type: 
  Country: None (occurrence: None)
  Receive Date: 20050722
  Receipt Date: 20040813
  Transmission Date: 20060218
  Serious: No
  Sender: FDA-Public Use
  Company Number: A0523169A

PATIENT
  Sex: Female

DRUGS (1)
  1. AVANDIA [Suspect]
     Indication: DRUG USE FOR UNKNOWN INDICATION
     Dosage: 4MG PER DAY
     Route: 048
     Dates: start: 20040414

REACTIONS (1)
  - JOINT SWELLING [None]
